FAERS Safety Report 7596607-3 (Version None)
Quarter: 2011Q3

REPORT INFORMATION
  Report Type: 
  Country: None (occurrence: None)
  Receive Date: 20110708
  Receipt Date: 20110628
  Transmission Date: 20111222
  Serious: Yes (Other)
  Sender: FDA-Public Use
  Company Number: JP-JNJFOC-20110609350

PATIENT
  Age: 59 Year
  Sex: Female

DRUGS (2)
  1. FENTANYL-100 [Suspect]
     Route: 062
  2. FENTANYL-100 [Suspect]
     Indication: PAIN
     Route: 062

REACTIONS (3)
  - THERAPY CESSATION [None]
  - WITHDRAWAL SYNDROME [None]
  - PSYCHIATRIC SYMPTOM [None]
